FAERS Safety Report 4515222-9 (Version None)
Quarter: 2004Q4

REPORT INFORMATION
  Report Type: 
  Country: None (occurrence: None)
  Receive Date: 20041201
  Receipt Date: 20041119
  Transmission Date: 20050328
  Serious: Yes (Disabling)
  Sender: FDA-Public Use
  Company Number: FR-GLAXOSMITHKLINE-B0358227A

PATIENT
  Age: 67 Year
  Sex: Female
  Weight: 67 kg

DRUGS (4)
  1. ZOPHREN [Suspect]
     Dosage: 8MG CYCLIC
     Route: 042
     Dates: start: 20031113, end: 20040310
  2. CYCLOPHOSPHAMIDE [Suspect]
     Indication: NON-HODGKIN'S LYMPHOMA
     Dosage: 430MG CYCLIC
     Route: 042
     Dates: start: 20031113, end: 20040310
  3. FLUDARA [Suspect]
     Indication: NON-HODGKIN'S LYMPHOMA
     Dosage: 43MG CYCLIC
     Route: 042
     Dates: start: 20031113, end: 20040310
  4. RITUXIMAB [Suspect]
     Indication: NON-HODGKIN'S LYMPHOMA
     Dosage: 650MG CYCLIC
     Route: 042
     Dates: start: 20031113, end: 20040310

REACTIONS (5)
  - ARTHRALGIA [None]
  - BLOOD DISORDER [None]
  - MOBILITY DECREASED [None]
  - MYALGIA [None]
  - PAIN IN EXTREMITY [None]
